FAERS Safety Report 8609114-3 (Version None)
Quarter: 2012Q3

REPORT INFORMATION
  Report Type: 
  Country: None (occurrence: None)
  Receive Date: 20120821
  Receipt Date: 20120806
  Transmission Date: 20120928
  Serious: Yes (Other)
  Sender: FDA-Public Use
  Company Number: SI-WATSON-2012-14399

PATIENT
  Age: 45 Year
  Sex: Male
  Weight: 90 kg

DRUGS (1)
  1. TESTOSTERONE [Suspect]
     Indication: PRIMARY HYPOGONADISM
     Dosage: 50 MG, DAILY
     Route: 061

REACTIONS (2)
  - AZOOSPERMIA [None]
  - INFERTILITY MALE [None]
